FAERS Safety Report 11283005 (Version 2)
Quarter: 2015Q3

REPORT INFORMATION
  Report Type: Spontaneous
  Country: CH (occurrence: CH)
  Receive Date: 20150720
  Receipt Date: 20150908
  Transmission Date: 20151125
  Serious: Yes (Hospitalization)
  Sender: FDA-Public Use
  Company Number: CH-JNJFOC-20150711374

PATIENT
  Age: 57 Year
  Sex: Male
  Weight: 72 kg

DRUGS (4)
  1. XARELTO [Suspect]
     Active Substance: RIVAROXABAN
     Indication: CEREBROVASCULAR ACCIDENT PROPHYLAXIS
     Route: 048
     Dates: start: 20140804, end: 20141112
  2. MARCOUMAR [Concomitant]
     Active Substance: PHENPROCOUMON
     Route: 065
     Dates: start: 20141112
  3. XARELTO [Suspect]
     Active Substance: RIVAROXABAN
     Indication: ATRIAL FIBRILLATION
     Route: 048
     Dates: start: 20140804, end: 20141112
  4. NEBIVOLOL. [Concomitant]
     Active Substance: NEBIVOLOL
     Route: 065

REACTIONS (2)
  - Drug ineffective [Unknown]
  - Embolism [Recovered/Resolved]

NARRATIVE: CASE EVENT DATE: 20141112
